FAERS Safety Report 7738007-9 (Version None)
Quarter: 2011Q3

REPORT INFORMATION
  Report Type: 
  Country: None (occurrence: None)
  Receive Date: 20110908
  Receipt Date: 20110830
  Transmission Date: 20111222
  Serious: Yes (Hospitalization)
  Sender: FDA-Public Use
  Company Number: US-ASTRAZENECA-2011SE52385

PATIENT
  Age: 83 Year
  Sex: Female

DRUGS (1)
  1. TOPROL-XL [Suspect]
     Route: 048

REACTIONS (1)
  - ORAL INFECTION [None]
